FAERS Safety Report 7037513-2 (Version None)
Quarter: 2010Q4

REPORT INFORMATION
  Report Type: 
  Country: None (occurrence: None)
  Receive Date: 20101011
  Receipt Date: 20100930
  Transmission Date: 20110411
  Serious: Yes (Other)
  Sender: FDA-Public Use
  Company Number: B0677054A

PATIENT
  Sex: Male

DRUGS (18)
  1. ZOFRAN [Suspect]
     Dosage: 4MG CYCLIC
     Route: 048
     Dates: start: 20091125, end: 20100521
  2. VIDAZA [Suspect]
     Dosage: 75MG CYCLIC
     Route: 042
     Dates: start: 20091125, end: 20100521
  3. LEVOTHYROXINE SODIUM [Concomitant]
     Indication: THYROIDECTOMY
     Dosage: 150MCG PER DAY
     Route: 048
  4. SPASFON [Concomitant]
     Route: 048
     Dates: start: 20091126, end: 20091130
  5. NEXIUM [Concomitant]
     Dosage: 20MG PER DAY
     Route: 048
     Dates: start: 20091125, end: 20091204
  6. RED BLOOD CELLS [Concomitant]
     Dosage: 2UNIT CUMULATIVE DOSE
     Route: 042
  7. AUGMENTIN '125' [Concomitant]
     Indication: DYSPHAGIA
     Dates: start: 20091216, end: 20091221
  8. CLARITHROMYCIN [Concomitant]
     Indication: BRONCHITIS
  9. CLARITHROMYCIN [Concomitant]
     Indication: BRONCHITIS
  10. TUSSIPAX [Concomitant]
     Indication: BRONCHITIS
  11. CORTANCYL [Concomitant]
     Indication: BRONCHITIS
  12. DOMPERIDONE [Concomitant]
     Indication: BRONCHITIS
  13. TROPHIRES [Concomitant]
     Indication: BRONCHITIS
  14. PARACETAMOL [Concomitant]
     Indication: BRONCHITIS
  15. CODEINE [Concomitant]
     Indication: BRONCHITIS
  16. IBUPROFEN [Concomitant]
     Indication: BRONCHITIS
  17. PARIET [Concomitant]
     Indication: CONSTIPATION
  18. TEXODIL [Concomitant]
     Indication: TRACHEITIS
     Dates: start: 20100301

REACTIONS (3)
  - CHOLESTASIS [None]
  - CONSTIPATION [None]
  - HEPATOCELLULAR INJURY [None]
